FAERS Safety Report 5145518-1 (Version None)
Quarter: 2006Q4

REPORT INFORMATION
  Report Type: 
  Country: None (occurrence: None)
  Receive Date: 20061101
  Receipt Date: 20061003
  Transmission Date: 20070319
  Serious: Yes (Other)
  Sender: FDA-Public Use
  Company Number: 06-04

PATIENT
  Sex: Male

DRUGS (1)
  1. PINK BISMUTH TABLETS 262MG / A + Z PHARMACEUTICAL, INC [Suspect]

REACTIONS (1)
  - DEAFNESS UNILATERAL [None]
